FAERS Safety Report 24281598 (Version 8)
Quarter: 2025Q1

REPORT INFORMATION
  Report Type: Spontaneous
  Country: US (occurrence: US)
  Receive Date: 20240904
  Receipt Date: 20250306
  Transmission Date: 20250409
  Serious: No
  Sender: PFIZER
  Company Number: US-PFIZER INC-202400245226

PATIENT
  Age: 14 Year
  Sex: Female
  Weight: 37.19 kg

DRUGS (2)
  1. GENOTROPIN [Suspect]
     Active Substance: SOMATROPIN
     Indication: Turner^s syndrome
     Dosage: 1.6 MG DAILY ABDOMEN OR LEGS UPPER THIGHS
     Route: 058
     Dates: start: 202312
  2. GENOTROPIN [Suspect]
     Active Substance: SOMATROPIN
     Dosage: 1.8 DOSE UNITS NOT SPECIFIED ONCE A DAY INJECT IT INTO HER STOMACH OR ABDOMEN
     Dates: start: 2024

REACTIONS (2)
  - Device issue [Unknown]
  - Poor quality device used [Unknown]

NARRATIVE: CASE EVENT DATE: 20240801
